FAERS Safety Report 23980812 (Version 1)
Quarter: 2024Q2

REPORT INFORMATION
  Report Type: Spontaneous
  Country: US (occurrence: US)
  Receive Date: 20240617
  Receipt Date: 20240617
  Transmission Date: 20240716
  Serious: No
  Sender: FDA-Public Use
  Company Number: US-ELI_LILLY_AND_COMPANY-US202406010510

PATIENT
  Age: 52 Year
  Sex: Female

DRUGS (2)
  1. TALTZ [Suspect]
     Active Substance: IXEKIZUMAB
     Indication: Psoriatic arthropathy
     Dosage: 80 MG, OTHER EVERY FOUR WEEKS
     Route: 058
     Dates: start: 2023
  2. TALTZ [Suspect]
     Active Substance: IXEKIZUMAB
     Indication: Psoriatic arthropathy
     Dosage: 80 MG, OTHER EVERY FOUR WEEKS
     Route: 058
     Dates: start: 2023

REACTIONS (2)
  - Treatment failure [Unknown]
  - Psoriatic arthropathy [Unknown]

NARRATIVE: CASE EVENT DATE: 20240214
